FAERS Safety Report 8710866 (Version 2)
Quarter: 2013Q1

REPORT INFORMATION
  Report Type: Spontaneous
  Country: BR (occurrence: BR)
  Receive Date: 20120807
  Receipt Date: 20130228
  Transmission Date: 20140127
  Serious: Yes (Death, Hospitalization, Other)
  Sender: FDA-Public Use
  Company Number: PHHY2012BR067402

PATIENT
  Sex: Female
  Weight: 42 kg

DRUGS (2)
  1. EXELON PATCH [Suspect]
     Indication: DEMENTIA ALZHEIMER^S TYPE
     Dosage: 4.6 MG (9MG/5CM) ONE PATCH DAILY
     Route: 062
     Dates: start: 201202
  2. EXELON PATCH [Suspect]
     Dosage: 9.5 MG (18/10CM), ONE PATCH DAILY
     Route: 062

REACTIONS (5)
  - Chronic obstructive pulmonary disease [Fatal]
  - Eating disorder [Not Recovered/Not Resolved]
  - Dementia [Not Recovered/Not Resolved]
  - Asthenia [Not Recovered/Not Resolved]
  - Diarrhoea [Not Recovered/Not Resolved]
